FAERS Safety Report 15060923 (Version 1)
Quarter: 2018Q2

REPORT INFORMATION
  Report Type: Spontaneous
  Country: US (occurrence: US)
  Receive Date: 20180625
  Receipt Date: 20180625
  Transmission Date: 20180711
  Serious: No
  Sender: FDA-Public Use
  Company Number: US-ROCHE-2027108

PATIENT
  Age: 65 Year
  Sex: Female
  Weight: 58.11 kg

DRUGS (5)
  1. KLONOPIN [Suspect]
     Active Substance: CLONAZEPAM
     Dosage: A QUARTER OF 0.5 MG DOSE ;ONGOING: NO
     Route: 048
     Dates: start: 20171018, end: 20171022
  2. KLONOPIN [Suspect]
     Active Substance: CLONAZEPAM
     Indication: RESTLESS LEGS SYNDROME
     Dosage: AS NEEDED ;ONGOING: NO
     Route: 048
     Dates: start: 2015, end: 201710
  3. KLONOPIN [Suspect]
     Active Substance: CLONAZEPAM
     Indication: SLEEP DISORDER
     Dosage: THREE QUARTERS OF 0.5 MG DOSE ;ONGOING: NO
     Route: 048
     Dates: start: 20171008, end: 20171011
  4. KLONOPIN [Suspect]
     Active Substance: CLONAZEPAM
     Dosage: HALF OF 0.5 MG DOSE ;ONGOING: NO
     Route: 048
     Dates: start: 20171012, end: 20171017
  5. KLONOPIN [Suspect]
     Active Substance: CLONAZEPAM
     Dosage: ONE EIGHTH OF LOWEST DOSE (PER PSYCHIATRY) ;ONGOING: NO
     Route: 048
     Dates: start: 20171023, end: 20171025

REACTIONS (20)
  - Decreased interest [Recovered/Resolved]
  - Behavioral addiction [Unknown]
  - Sensory loss [Recovered/Resolved]
  - Withdrawal syndrome [Not Recovered/Not Resolved]
  - Ear congestion [Recovered/Resolved]
  - Depressed mood [Recovered/Resolved]
  - Balance disorder [Recovered/Resolved]
  - Road traffic accident [Recovered/Resolved]
  - Delusion [Recovered/Resolved]
  - Chills [Recovered/Resolved]
  - Coordination abnormal [Recovered/Resolved]
  - Fall [Unknown]
  - Headache [Unknown]
  - Memory impairment [Unknown]
  - Drug dependence [Not Recovered/Not Resolved]
  - Hallucination [Recovered/Resolved]
  - Weight decreased [Unknown]
  - Dizziness [Not Recovered/Not Resolved]
  - Feeling abnormal [Recovered/Resolved]
  - Tinnitus [Not Recovered/Not Resolved]

NARRATIVE: CASE EVENT DATE: 2017
